FAERS Safety Report 7797242-4 (Version None)
Quarter: 2011Q4

REPORT INFORMATION
  Report Type: 
  Country: None (occurrence: None)
  Receive Date: 20111005
  Receipt Date: 20110928
  Transmission Date: 20120403
  Serious: Yes (Other)
  Sender: FDA-Public Use
  Company Number: JP-PFIZER INC-2011231551

PATIENT
  Age: 6 Year
  Sex: Female

DRUGS (1)
  1. SOMATROPIN [Suspect]
     Indication: DWARFISM
     Dosage: UNK

REACTIONS (3)
  - TONSILLAR HYPERTROPHY [None]
  - SLEEP APNOEA SYNDROME [None]
  - ADENOIDAL HYPERTROPHY [None]
